FAERS Safety Report 8023579-X (Version None)
Quarter: 2012Q1

REPORT INFORMATION
  Report Type: 
  Country: None (occurrence: None)
  Receive Date: 20120105
  Receipt Date: 20111226
  Transmission Date: 20120608
  Serious: Yes (Other)
  Sender: FDA-Public Use
  Company Number: ZA-BRISTOL-MYERS SQUIBB COMPANY-16315566

PATIENT
  Age: 4 Year
  Sex: Female

DRUGS (2)
  1. EFAVIRENZ [Suspect]
     Indication: HIV INFECTION
  2. MULTI-VITAMIN [Concomitant]
     Dosage: SYRUP

REACTIONS (2)
  - PETIT MAL EPILEPSY [None]
  - DRUG LEVEL INCREASED [None]
